FAERS Safety Report 23809609 (Version 2)
Quarter: 2024Q2

REPORT INFORMATION
  Report Type: Spontaneous
  Country: DE (occurrence: DE)
  Receive Date: 20240502
  Receipt Date: 20240529
  Transmission Date: 20240716
  Serious: Yes (Other)
  Sender: FDA-Public Use
  Company Number: None

PATIENT
  Sex: Male

DRUGS (12)
  1. CITALOPRAM [Suspect]
     Active Substance: CITALOPRAM\CITALOPRAM HYDROBROMIDE
     Indication: Depression
     Dosage: 30 MILLIGRAM, QD
     Route: 065
     Dates: end: 20240318
  2. ASPIRIN [Concomitant]
     Active Substance: ASPIRIN
     Dosage: 100 MILLIGRAM, QD, 1-0-0
     Route: 065
     Dates: start: 20160202
  3. PANTOPRAZOLE [Concomitant]
     Active Substance: PANTOPRAZOLE
     Dosage: 40 MILLIGRAM, QD, 1-0-0
     Route: 065
     Dates: start: 20160202
  4. NALOXONE HYDROCHLORIDE\TILIDINE HYDROCHLORIDE [Concomitant]
     Active Substance: NALOXONE HYDROCHLORIDE\TILIDINE HYDROCHLORIDE
     Indication: Pain
     Dosage: 1 DOSAGE FORM, BID, 1-0-1 TO 4X1 AT PAIN
     Route: 065
     Dates: start: 20160202
  5. CHOLECALCIFEROL [Concomitant]
     Active Substance: CHOLECALCIFEROL
     Dosage: 1000 INTERNATIONAL UNIT, QD, 1-0-0
     Route: 065
     Dates: start: 20160202
  6. FENOTEROL HYDROBROMIDE\IPRATROPIUM BROMIDE [Concomitant]
     Active Substance: FENOTEROL HYDROBROMIDE\IPRATROPIUM BROMIDE
     Dosage: UNK 1-3 TIMES DAILY
     Route: 065
     Dates: start: 20160202
  7. FOLIC ACID [Concomitant]
     Active Substance: FOLIC ACID
     Dosage: 5 MILLIGRAM, QD, 1-0-0
     Route: 065
     Dates: start: 20160202
  8. NITROLINGUAL [Concomitant]
     Active Substance: NITROGLYCERIN
     Indication: Angina pectoris
     Dosage: 1-2 PUFFS FOR ANGINA, ASNECESSARY
     Route: 065
     Dates: start: 20160202
  9. SIMVASTATIN [Concomitant]
     Active Substance: SIMVASTATIN
     Dosage: 40 MILLIGRAM, QD 0-0-1
     Route: 065
     Dates: start: 20160202
  10. NOVALGIN (METAMIZOLE SODIUM) [Concomitant]
     Active Substance: METAMIZOLE SODIUM
     Dosage: 40 DROPS IF REQUIRED, MAXIMUM DOSE 160 DROPS DAILY
     Route: 065
     Dates: start: 20160202
  11. AMLODIPINE [Concomitant]
     Active Substance: AMLODIPINE BESYLATE
     Indication: Cardiovascular disorder
     Dosage: 2.5 MILLIGRAM, QD, 0-0-0.5
     Route: 065
  12. RANEXA [Concomitant]
     Active Substance: RANOLAZINE
     Dosage: 500 MILLIGRAM, BID, 1-0-1
     Route: 065
     Dates: start: 20160202

REACTIONS (17)
  - Atrioventricular block second degree [Unknown]
  - Syncope [Unknown]
  - Memory impairment [Unknown]
  - Dizziness postural [Unknown]
  - Muscle twitching [Unknown]
  - Hypersomnia [Unknown]
  - Abnormal dreams [Unknown]
  - Dyspnoea [Unknown]
  - Sleep disorder [Unknown]
  - Tinnitus [Unknown]
  - Migraine [Unknown]
  - Bruxism [Unknown]
  - Alopecia [Unknown]
  - Tremor [Unknown]
  - Somnolence [Recovered/Resolved]
  - Headache [Unknown]
  - Agitation [Unknown]
